FAERS Safety Report 8167461-6 (Version None)
Quarter: 2012Q1

REPORT INFORMATION
  Report Type: 
  Country: None (occurrence: None)
  Receive Date: 20120227
  Receipt Date: 20120222
  Transmission Date: 20120608
  Serious: Yes (Other)
  Sender: FDA-Public Use
  Company Number: US-PFIZER INC-2012048002

PATIENT
  Sex: Female
  Weight: 61.224 kg

DRUGS (3)
  1. LYRICA [Suspect]
     Indication: NEUROPATHY PERIPHERAL
     Dosage: UNK
     Dates: start: 20080101, end: 20120201
  2. IBUPROFEN [Suspect]
     Indication: PAIN
     Dosage: 600 MG,EVERY 6 HOURS
     Dates: start: 20120201
  3. FLEXERIL [Suspect]
     Indication: PAIN
     Dosage: 5 MG, 2X/DAY
     Dates: start: 20120201

REACTIONS (2)
  - PAIN [None]
  - DRUG INEFFECTIVE [None]
